FAERS Safety Report 18622705 (Version 1)
Quarter: 2020Q4

REPORT INFORMATION
  Report Type: Spontaneous
  Country: US (occurrence: US)
  Receive Date: 20201215
  Receipt Date: 20201215
  Transmission Date: 20210114
  Serious: No
  Sender: FDA-Public Use
  Company Number: None

PATIENT
  Age: 31 Year
  Sex: Female
  Weight: 102.06 kg

DRUGS (2)
  1. VITAMIN D [Concomitant]
     Active Substance: VITAMIN D NOS
  2. PARAGARD T 380A [Suspect]
     Active Substance: COPPER

REACTIONS (3)
  - Muscle spasms [None]
  - Pain [None]
  - Device expulsion [None]

NARRATIVE: CASE EVENT DATE: 20201215
